FAERS Safety Report 4897006-5 (Version None)
Quarter: 2006Q1

REPORT INFORMATION
  Report Type: 
  Country: None (occurrence: None)
  Receive Date: 20060127
  Receipt Date: 20060106
  Transmission Date: 20060701
  Serious: Yes (Other)
  Sender: FDA-Public Use
  Company Number: ZA200601002504

PATIENT
  Age: 60 Year
  Sex: Female

DRUGS (3)
  1. GEMZAR [Suspect]
     Indication: OVARIAN CANCER
     Dates: start: 20000101, end: 20010101
  2. TAXOL [Concomitant]
  3. PLATINUM COMPOUNDS [Concomitant]

REACTIONS (2)
  - HEPATITIS CHRONIC ACTIVE [None]
  - RENAL IMPAIRMENT [None]
